FAERS Safety Report 23088630 (Version 2)
Quarter: 2024Q4

REPORT INFORMATION
  Report Type: Report from Study
  Country: CN (occurrence: CN)
  Receive Date: 20231020
  Receipt Date: 20241008
  Transmission Date: 20250115
  Serious: Yes (Death, Life-Threatening, Hospitalization)
  Sender: SANDOZ
  Company Number: CN-BEIGENE-BGN-2023-007680

PATIENT
  Age: 71 Year
  Sex: Female

DRUGS (6)
  1. DOCETAXEL [Suspect]
     Active Substance: DOCETAXEL
     Dosage: 80 MG
     Route: 042
     Dates: start: 20230706
  2. DOCETAXEL [Suspect]
     Active Substance: DOCETAXEL
     Indication: Lung adenocarcinoma
     Dosage: 85 MG
     Route: 042
     Dates: start: 20230607
  3. SITRAVATINIB [Suspect]
     Active Substance: SITRAVATINIB
     Indication: Lung adenocarcinoma
     Dosage: 70 MG
     Route: 065
     Dates: start: 20230607
  4. SITRAVATINIB [Suspect]
     Active Substance: SITRAVATINIB
     Dosage: 70 MG
     Route: 065
     Dates: start: 20230706
  5. TISLELIZUMAB [Suspect]
     Active Substance: TISLELIZUMAB
     Indication: Lung adenocarcinoma
     Dosage: 200 MG
     Route: 042
     Dates: start: 20230607
  6. TISLELIZUMAB [Suspect]
     Active Substance: TISLELIZUMAB
     Dosage: 200 MG
     Route: 042
     Dates: start: 20230706

REACTIONS (1)
  - Immune-mediated lung disease [Fatal]

NARRATIVE: CASE EVENT DATE: 20230726
